FAERS Safety Report 21530402 (Version 2)
Quarter: 2022Q4

REPORT INFORMATION
  Report Type: Spontaneous
  Country: CN (occurrence: CN)
  Receive Date: 20221031
  Receipt Date: 20221102
  Transmission Date: 20230112
  Serious: Yes (Other)
  Sender: FDA-Public Use
  Company Number: CN-PFIZER INC-PV202200091745

PATIENT
  Age: 31 Year
  Sex: Female
  Weight: 47 kg

DRUGS (1)
  1. METHOTREXATE SODIUM [Suspect]
     Active Substance: METHOTREXATE SODIUM
     Indication: Ectopic pregnancy termination
     Dosage: 15 MG, 1X/DAY
     Route: 030
     Dates: start: 20220910, end: 20220915

REACTIONS (2)
  - Haemorrhage [Recovering/Resolving]
  - Mouth ulceration [Recovering/Resolving]

NARRATIVE: CASE EVENT DATE: 20220915
